FAERS Safety Report 10522119 (Version 1)
Quarter: 2014Q4

REPORT INFORMATION
  Report Type: Spontaneous
  Country: US (occurrence: US)
  Receive Date: 20141016
  Receipt Date: 20141016
  Transmission Date: 20150528
  Serious: No
  Sender: FDA-Public Use
  Company Number: US-PFIZER INC-2014280135

PATIENT
  Age: 35 Year
  Sex: Female

DRUGS (16)
  1. GABAPENTIN. [Concomitant]
     Active Substance: GABAPENTIN
     Dosage: 600 MG, 3X/DAY
     Route: 048
     Dates: start: 20140326
  2. TOPAMAX [Concomitant]
     Active Substance: TOPIRAMATE
     Dosage: 50 MG, DAILY
     Route: 048
     Dates: start: 20140326, end: 20140505
  3. DIAZEPAM. [Concomitant]
     Active Substance: DIAZEPAM
     Dosage: 5 MG, 2X/DAY
     Route: 048
     Dates: start: 20140326
  4. ALEVE [Concomitant]
     Active Substance: NAPROXEN SODIUM
     Dosage: 220 MG, (NEEDED EVERY 12 HOURS)
     Route: 048
     Dates: start: 20140505
  5. MUPIROCIN. [Concomitant]
     Active Substance: MUPIROCIN
     Dosage: UNK
     Route: 061
     Dates: start: 20140326
  6. HUMIRA [Concomitant]
     Active Substance: ADALIMUMAB
     Dosage: 0.8 ML, UNK EVERY 2 WEEKS
     Route: 058
     Dates: start: 20140326
  7. TOPAMAX [Concomitant]
     Active Substance: TOPIRAMATE
     Dosage: 100 MG, 2X/DAY
     Route: 048
     Dates: start: 20140326
  8. RELPAX [Suspect]
     Active Substance: ELETRIPTAN HYDROBROMIDE
     Dosage: 40 MG, 1X/DAY
  9. FIORICET [Concomitant]
     Active Substance: ACETAMINOPHEN\BUTALBITAL\CAFFEINE
     Dosage: 325 MG, EVERY 4 HOURS AS NEEDED NOT TO EXCEED 6 TABLETS PER 24HRS
     Route: 048
     Dates: start: 20140326
  10. SUMATRIPTAN. [Concomitant]
     Active Substance: SUMATRIPTAN
     Indication: HEADACHE
     Dosage: 0.5 ML, UNK ONCE;MAY BE REPEATED 1 HOUR AFTER THE FIRST DOSE IF HEADACHE PAIN RETURNS OR INCREASES
     Route: 058
     Dates: start: 20140326
  11. TRIAMCINOLONE [Concomitant]
     Active Substance: TRIAMCINOLONE
     Dosage: UNK
     Dates: start: 20140326
  12. VESICARE [Concomitant]
     Active Substance: SOLIFENACIN SUCCINATE
     Dosage: 10 MG, DAILY
     Route: 048
     Dates: start: 20140326
  13. TOPAMAX [Concomitant]
     Active Substance: TOPIRAMATE
     Dosage: 25 MG, UNK (TAKE 2 TABS BID X 1WK THEN 3 TABS BID X 1 WK THEN 100MG BID)
     Dates: start: 20140326, end: 20140505
  14. ZOLOFT [Suspect]
     Active Substance: SERTRALINE HYDROCHLORIDE
     Dosage: 100 MG, DAILY
     Route: 048
     Dates: start: 20140326
  15. FIORICET [Concomitant]
     Active Substance: ACETAMINOPHEN\BUTALBITAL\CAFFEINE
     Dosage: 50 MG, EVERY 4 HOURS AS NEEDED NOT TO EXCEED 6 TABLETS PER 24HRS
     Route: 048
     Dates: start: 20140326
  16. FIORICET [Concomitant]
     Active Substance: ACETAMINOPHEN\BUTALBITAL\CAFFEINE
     Dosage: 40 MG, EVERY 4 HOURS AS NEEDED NOT TO EXCEED 6 TABLETS PER 24HRS
     Route: 048
     Dates: start: 20140326

REACTIONS (1)
  - Headache [Unknown]
